FAERS Safety Report 20097281 (Version 1)
Quarter: 2021Q4

REPORT INFORMATION
  Report Type: Spontaneous
  Country: DE (occurrence: DE)
  Receive Date: 20211122
  Receipt Date: 20211122
  Transmission Date: 20220303
  Serious: Yes (Other)
  Sender: FDA-Public Use
  Company Number: None

PATIENT
  Age: 68 Year
  Sex: Female
  Weight: 60 kg

DRUGS (1)
  1. ASPIRIN [Suspect]
     Active Substance: ASPIRIN
     Indication: Myocardial infarction
     Dosage: 100 MG, QD
     Route: 048
     Dates: start: 2016

REACTIONS (10)
  - Laryngeal oedema [Unknown]
  - Dysphagia [Recovered/Resolved]
  - Swelling of eyelid [Unknown]
  - Palatal swelling [Unknown]
  - Pharyngeal swelling [Not Recovered/Not Resolved]
  - Enlarged uvula [Unknown]
  - Panic reaction [Recovered/Resolved]
  - Food interaction [Unknown]
  - Lip swelling [Unknown]
  - Swelling face [Not Recovered/Not Resolved]

NARRATIVE: CASE EVENT DATE: 20210901
